FAERS Safety Report 24031121 (Version 2)
Quarter: 2024Q3

REPORT INFORMATION
  Report Type: Report from Study
  Country: GR (occurrence: GR)
  Receive Date: 20240628
  Receipt Date: 20240722
  Transmission Date: 20241017
  Serious: Yes (Hospitalization, Other)
  Sender: ABBVIE
  Company Number: GR-ABBVIE-4141584

PATIENT
  Age: 87 Year
  Sex: Male
  Weight: 60 kg

DRUGS (10)
  1. VENETOCLAX [Suspect]
     Active Substance: VENETOCLAX
     Indication: Acute myeloid leukaemia
     Dosage: LAST ADMIN DATE: SEP 2022?FREQUENCY TEXT: ONCE
     Route: 048
     Dates: start: 20220926
  2. VENETOCLAX [Suspect]
     Active Substance: VENETOCLAX
     Indication: Acute myeloid leukaemia
     Route: 048
     Dates: start: 20220928, end: 20221007
  3. VENETOCLAX [Suspect]
     Active Substance: VENETOCLAX
     Indication: Acute myeloid leukaemia
     Dosage: LAST ADMIN DATE: 2022
     Route: 048
     Dates: start: 20221010
  4. VENETOCLAX [Suspect]
     Active Substance: VENETOCLAX
     Indication: Acute myeloid leukaemia
     Route: 048
     Dates: end: 20230406
  5. VENETOCLAX [Suspect]
     Active Substance: VENETOCLAX
     Indication: Acute myeloid leukaemia
     Route: 048
     Dates: start: 20221103, end: 20221117
  6. AZACITIDINE [Suspect]
     Active Substance: AZACITIDINE
     Indication: Acute myeloid leukaemia
     Route: 058
     Dates: start: 20220926
  7. AMLODIPINE BESYLATE\VALSARTAN [Concomitant]
     Active Substance: AMLODIPINE BESYLATE\VALSARTAN
     Indication: Hypertension
     Dosage: 5/160 MG
     Route: 048
     Dates: start: 201710
  8. SILODOSIN [Concomitant]
     Active Substance: SILODOSIN
     Indication: Benign prostatic hyperplasia
     Route: 048
     Dates: start: 201903
  9. DORALIN [Concomitant]
     Indication: Colitis
     Route: 048
     Dates: start: 201701
  10. TORSEMIDE [Concomitant]
     Active Substance: TORSEMIDE
     Indication: Hypertension
     Route: 048
     Dates: start: 202208

REACTIONS (9)
  - Hyperuricaemia [Recovered/Resolved]
  - Pyrexia [Recovered/Resolved]
  - Diarrhoea [Recovered/Resolved]
  - Vomiting [Recovered/Resolved]
  - Blood uric acid increased [Recovered/Resolved]
  - Arthralgia [Recovered/Resolved]
  - Muscle spasms [Recovered/Resolved]
  - Febrile neutropenia [Recovered/Resolved]
  - Gastroenteritis [Recovered/Resolved]

NARRATIVE: CASE EVENT DATE: 20220926
